FAERS Safety Report 23452554 (Version 1)
Quarter: 2024Q1

REPORT INFORMATION
  Report Type: Spontaneous
  Country: GB (occurrence: GB)
  Receive Date: 20240129
  Receipt Date: 20240129
  Transmission Date: 20240409
  Serious: Yes (Other)
  Sender: FDA-Public Use
  Company Number: None

PATIENT
  Age: 52 Year
  Sex: Female
  Weight: 93 kg

DRUGS (9)
  1. METRONIDAZOLE [Suspect]
     Active Substance: METRONIDAZOLE
     Indication: Ill-defined disorder
     Route: 065
     Dates: start: 20240122
  2. AMITRIPTYLINE HYDROCHLORIDE [Concomitant]
     Active Substance: AMITRIPTYLINE HYDROCHLORIDE
     Indication: Ill-defined disorder
     Dosage: (DOSAGE TEXT: TAKE ONE AT NIGHT)
     Route: 065
     Dates: start: 20230820
  3. ATORVASTATIN [Concomitant]
     Active Substance: ATORVASTATIN
     Indication: Ill-defined disorder
     Dosage: (DOSAGE TEXT: TAKE ONE DAILY)
     Route: 065
     Dates: start: 20230820
  4. DOXYCYCLINE [Concomitant]
     Active Substance: DOXYCYCLINE
     Indication: Ill-defined disorder
     Dosage: (DOSAGE TEXT: TWO NOW THEN ONE DAILY)
     Route: 065
     Dates: start: 20240122
  5. ESTRADIOL [Concomitant]
     Active Substance: ESTRADIOL
     Indication: Ill-defined disorder
     Dosage: (DOSAGE TEXT: -APPLY ONE TWICE WEEKLY)
     Route: 065
     Dates: start: 20231122, end: 20231220
  6. INSTILLAGEL [Concomitant]
     Active Substance: CHLORHEXIDINE GLUCONATE\LIDOCAINE HYDROCHLORIDE
     Indication: Ill-defined disorder
     Dosage: (DOSAGE TEXT: USE AS DIRECTED)
     Route: 065
     Dates: start: 20231213, end: 20231214
  7. LEVOTHYROXINE [Concomitant]
     Active Substance: LEVOTHYROXINE\LEVOTHYROXINE SODIUM
     Indication: Ill-defined disorder
     Dosage: (DOSAGE TEXT: TAKE ONE EACH MORNING)
     Route: 065
     Dates: start: 20230820
  8. MIRENA [Concomitant]
     Active Substance: LEVONORGESTREL
     Indication: Ill-defined disorder
     Dosage: (DOSAGE TEXT: USE AS DIRECTED)
     Route: 065
     Dates: start: 20231213, end: 20231214
  9. PROCHLORPERAZINE [Concomitant]
     Active Substance: PROCHLORPERAZINE
     Indication: Ill-defined disorder
     Dosage: (DOSAGE TEXT: USE AS DIRECTED)
     Route: 065
     Dates: start: 20230820

REACTIONS (1)
  - Adverse drug reaction [Recovered/Resolved]

NARRATIVE: CASE EVENT DATE: 20240122
